FAERS Safety Report 14698091 (Version 4)
Quarter: 2018Q3

REPORT INFORMATION
  Report Type: Report from Study
  Country: None (occurrence: US)
  Receive Date: 20180330
  Receipt Date: 20180727
  Transmission Date: 20181010
  Serious: Yes (Life-Threatening, Hospitalization, Other)
  Sender: FDA-Public Use
  Company Number: US-ABBVIE-18K-163-2301345-00

PATIENT
  Age: 70 Year
  Sex: Female
  Weight: 72.64 kg

DRUGS (10)
  1. HUMIRA [Suspect]
     Active Substance: ADALIMUMAB
     Indication: CROHN^S DISEASE
     Route: 058
     Dates: start: 2006, end: 2011
  2. VITAMIN D [Concomitant]
     Active Substance: CHOLECALCIFEROL
     Indication: VITAMIN SUPPLEMENTATION
  3. LISINOPRIL. [Concomitant]
     Active Substance: LISINOPRIL
     Indication: BLOOD PRESSURE MEASUREMENT
  4. HUMIRA [Suspect]
     Active Substance: ADALIMUMAB
     Route: 058
     Dates: start: 201604, end: 20180201
  5. HUMIRA [Suspect]
     Active Substance: ADALIMUMAB
     Route: 058
     Dates: start: 20180308
  6. KEFLEX [Suspect]
     Active Substance: CEPHALEXIN
     Indication: ANTIBIOTIC THERAPY
     Route: 065
     Dates: start: 201802, end: 201802
  7. LEVOTHYROXINE. [Concomitant]
     Active Substance: LEVOTHYROXINE
     Indication: HYPOTHYROIDISM
  8. METOPROLOL. [Concomitant]
     Active Substance: METOPROLOL
     Indication: BLOOD PRESSURE MEASUREMENT
  9. ISONIAZID. [Suspect]
     Active Substance: ISONIAZID
     Indication: ANTIBIOTIC PROPHYLAXIS
     Route: 065
     Dates: end: 2018
  10. AZATHIOPRINE. [Concomitant]
     Active Substance: AZATHIOPRINE
     Indication: CROHN^S DISEASE
     Dosage: 1 AND HALF IN 1 DAY

REACTIONS (18)
  - Squamous cell carcinoma of skin [Unknown]
  - Drug intolerance [Unknown]
  - Diet noncompliance [Unknown]
  - Musculoskeletal pain [Unknown]
  - Alopecia [Unknown]
  - Pneumonia [Recovered/Resolved]
  - Inflammation [Recovered/Resolved]
  - Dermatitis allergic [Recovering/Resolving]
  - Allergic oedema [Recovering/Resolving]
  - Fluid retention [Recovered/Resolved]
  - Peripheral swelling [Recovering/Resolving]
  - Influenza like illness [Recovering/Resolving]
  - Drug hypersensitivity [Recovering/Resolving]
  - Erythema [Recovering/Resolving]
  - Weight increased [Recovered/Resolved]
  - Respiratory arrest [Recovered/Resolved]
  - Mobility decreased [Unknown]
  - Blood pressure increased [Unknown]

NARRATIVE: CASE EVENT DATE: 2018
